FAERS Safety Report 7021272-3 (Version None)
Quarter: 2010Q3

REPORT INFORMATION
  Report Type: 
  Country: None (occurrence: None)
  Receive Date: 20100927
  Receipt Date: 20100914
  Transmission Date: 20110219
  Serious: Yes (Hospitalization)
  Sender: FDA-Public Use
  Company Number: 011041

PATIENT
  Sex: Female

DRUGS (3)
  1. PLETAL [Suspect]
     Indication: PRODUCT USED FOR UNKNOWN INDICATION
     Dosage: 100 MG, BID, ORAL
     Route: 048
  2. CELECOXIB [Concomitant]
  3. ASPIRIN [Concomitant]

REACTIONS (2)
  - EOSINOPHIL COUNT INCREASED [None]
  - RASH [None]
